FAERS Safety Report 16582378 (Version 1)
Quarter: 2019Q3

REPORT INFORMATION
  Report Type: Spontaneous
  Country: PL (occurrence: PL)
  Receive Date: 20190717
  Receipt Date: 20190717
  Transmission Date: 20191004
  Serious: Yes (Other)
  Sender: FDA-Public Use
  Company Number: PL-PFIZER INC-2019240663

PATIENT
  Sex: Female

DRUGS (1)
  1. EFECTIN ER [Suspect]
     Active Substance: VENLAFAXINE HYDROCHLORIDE
     Dosage: 75 MG, 1X/DAY, DRUG TAKEN BY FATHER

REACTIONS (4)
  - Haematocoele female [Unknown]
  - Subchorionic haematoma [Unknown]
  - Maternal exposure during pregnancy [Unknown]
  - Vaginal haemorrhage [Not Recovered/Not Resolved]

NARRATIVE: CASE EVENT DATE: 20190603
